FAERS Safety Report 7806581-X (Version None)
Quarter: 2011Q4

REPORT INFORMATION
  Report Type: 
  Country: None (occurrence: None)
  Receive Date: 20111007
  Receipt Date: 20111007
  Transmission Date: 20120403
  Serious: Yes (Death, Hospitalization)
  Sender: FDA-Public Use
  Company Number: None

PATIENT
  Sex: Male
  Weight: 13.7 kg

DRUGS (4)
  1. MERCAPTOPURINE [Suspect]
     Dosage: 970 MG
     Dates: end: 20100826
  2. METHOTREXATE [Suspect]
     Dosage: 10 MG
     Dates: end: 20100608
  3. DEXAMETHASONE [Suspect]
     Dosage: 19.2 MG
     Dates: end: 20100804
  4. VINCRISTINE SULFATE [Suspect]
     Dosage: 1.74 MG
     Dates: end: 20100803

REACTIONS (5)
  - PYREXIA [None]
  - GENERAL PHYSICAL HEALTH DETERIORATION [None]
  - MYCOBACTERIUM TEST POSITIVE [None]
  - MULTI-ORGAN FAILURE [None]
  - ASPERGILLOSIS [None]
